FAERS Safety Report 8044643-5 (Version None)
Quarter: 2012Q1

REPORT INFORMATION
  Report Type: 
  Country: None (occurrence: None)
  Receive Date: 20120113
  Receipt Date: 20120106
  Transmission Date: 20120608
  Serious: Yes (Hospitalization)
  Sender: FDA-Public Use
  Company Number: US-BAYER-2011-087447

PATIENT
  Age: 33 Year
  Sex: Female

DRUGS (5)
  1. ZANTAC [Concomitant]
  2. SYNTHROID [Concomitant]
     Dosage: UNK
     Dates: start: 20060101
  3. PEPCID [Concomitant]
  4. YAZ [Suspect]
     Indication: CONTRACEPTION
     Dosage: UNK
     Dates: start: 20080101, end: 20090101
  5. ALLEGRA [Concomitant]
     Indication: MULTIPLE ALLERGIES

REACTIONS (4)
  - CHOLECYSTITIS CHRONIC [None]
  - GALLBLADDER PAIN [None]
  - PROCEDURAL PAIN [None]
  - CHOLECYSTECTOMY [None]
